FAERS Safety Report 9457338 (Version 1)
Quarter: 2013Q3

REPORT INFORMATION
  Report Type: Spontaneous
  Country: IN (occurrence: None)
  Receive Date: 20130812
  Receipt Date: 20130812
  Transmission Date: 20140515
  Serious: Yes (Hospitalization)
  Sender: FDA-Public Use
  Company Number: IPC201307-000303

PATIENT
  Age: 65 Year
  Sex: Female

DRUGS (5)
  1. AMLODIPINE BESILATE (AMLODIPINE BESILATE) [Suspect]
  2. FUROSEMIDE (FUROSEMIDE) [Suspect]
  3. CLOPIDOGREL [Suspect]
  4. ATORVASTATIN [Suspect]
     Route: 048
  5. INSULIN [Suspect]

REACTIONS (7)
  - Hypokalaemia [None]
  - Rhabdomyolysis [None]
  - Renal failure acute [None]
  - Drug interaction [None]
  - Nausea [None]
  - Decreased appetite [None]
  - Glucose urine present [None]
